FAERS Safety Report 24374209 (Version 1)
Quarter: 2024Q3

REPORT INFORMATION
  Report Type: Spontaneous
  Country: US (occurrence: US)
  Receive Date: 20240927
  Receipt Date: 20240927
  Transmission Date: 20241017
  Serious: Yes (Hospitalization)
  Sender: PFIZER
  Company Number: US-SEATTLE GENETICS-2018SGN02895

PATIENT
  Age: 8 Decade
  Sex: Male

DRUGS (4)
  1. ADCETRIS [Suspect]
     Active Substance: BRENTUXIMAB VEDOTIN
     Dosage: UNK UNK, CYCLIC
     Route: 065
  2. DOXORUBICIN HYDROCHLORIDE [Suspect]
     Active Substance: DOXORUBICIN HYDROCHLORIDE
     Dosage: UNK UNK, CYCLIC
     Route: 065
  3. DACARBAZINE [Suspect]
     Active Substance: DACARBAZINE
     Dosage: UNK UNK, CYCLIC
     Route: 065
  4. VINBLASTINE [Suspect]
     Active Substance: VINBLASTINE
     Dosage: UNK UNK, CYCLIC
     Route: 065

REACTIONS (1)
  - Pneumocystis jirovecii pneumonia [Recovered/Resolved]
